FAERS Safety Report 14570597 (Version 3)
Quarter: 2019Q1

REPORT INFORMATION
  Report Type: Spontaneous
  Country: NL (occurrence: NL)
  Receive Date: 20180226
  Receipt Date: 20190103
  Transmission Date: 20190417
  Serious: Yes (Death, Life-Threatening, Other)
  Sender: FDA-Public Use
  Company Number: NL-CONCORDIA PHARMACEUTICALS INC.-E2B_00010096

PATIENT
  Age: 72 Year
  Sex: Female

DRUGS (6)
  1. MAGNESIUM [Concomitant]
     Active Substance: MAGNESIUM
     Dosage: LARGE AMOUNTS
     Route: 042
  2. POLYETHYLENE GLYCOL [Suspect]
     Active Substance: POLYETHYLENE GLYCOLS
     Indication: BOWEL PREPARATION
     Dosage: 2 L, LOW-VOLUME PEG
     Route: 048
  3. PREDNISOLONE. [Suspect]
     Active Substance: PREDNISOLONE
     Indication: CROHN^S DISEASE
     Route: 048
  4. POLYETHYLENE GLYCOL [Suspect]
     Active Substance: POLYETHYLENE GLYCOLS
     Dosage: 3 L, LOW-VOLUME PEG
     Route: 048
  5. HYDROCHLOROTHIAZIDE. [Suspect]
     Active Substance: HYDROCHLOROTHIAZIDE
  6. POTASSIUM [Concomitant]
     Active Substance: POTASSIUM
     Dosage: LARGE AMOUNTS
     Route: 042

REACTIONS (6)
  - Therapeutic response decreased [Unknown]
  - Cardiac arrest [Fatal]
  - Hypokalaemia [Fatal]
  - Acidosis [Fatal]
  - Ventricular fibrillation [Fatal]
  - Incorrect dose administered [Unknown]
